FAERS Safety Report 9227209 (Version 1)
Quarter: 2013Q1

REPORT INFORMATION
  Report Type: Spontaneous
  Country: US (occurrence: US)
  Receive Date: 20121012
  Receipt Date: 20121012
  Transmission Date: 20140127
  Serious: No
  Sender: FDA-Public Use
  Company Number: 1000029628

PATIENT
  Age: 78 Year
  Sex: Female

DRUGS (11)
  1. LEXAPRO [Suspect]
     Indication: DEPRESSION
     Route: 048
     Dates: start: 2011, end: 2012
  2. CYMBALTA (DULOXETINE HYDROCHLORIDE) [Suspect]
     Indication: DEPRESSION
     Route: 048
     Dates: start: 2012, end: 2012
  3. CYMBALTA (DULOXETINE HYDROCHLORIDE) [Suspect]
     Indication: ARTHRITIS
     Route: 048
     Dates: start: 2012, end: 2012
  4. SPIRIVA (TIOTROPIUM BROMIDE)(TIOTROPIUM BROMIDE) [Concomitant]
  5. HYDROCHLOROTHIAZIDE (HYDROCHLOROTHIAZIDE)(HYDROCHLOROTHIAZIDE) [Concomitant]
  6. SYNTHROID (LEVOTHYROXINE SODIUM)(LEVOTHYROXINE SODIUM) [Concomitant]
  7. CRESTOR (ROSUVASTATIN CALCIUM)(ROSUVASTATIN CALCIUM) [Concomitant]
  8. BONIVA (IBANDRONATE SODIUM)(IBANDRONATE SODIUM) [Concomitant]
  9. DEXLANSOPRAZOLE (DEXLANSOPRAZOLE)(DEXLANSOPRAZOLE) [Concomitant]
  10. ALBUTEROL (ALBUTEROL)(ALBUTEROL) [Concomitant]
  11. SYMBICORT (BUDESONIDE, FORMOTEROL)(BUDESONIDE, FORMOTEROL) [Concomitant]

REACTIONS (1)
  - Hypertension [None]
